FAERS Safety Report 8234768-3 (Version None)
Quarter: 2012Q1

REPORT INFORMATION
  Report Type: 
  Country: None (occurrence: None)
  Receive Date: 20120321
  Receipt Date: 20120310
  Transmission Date: 20120608
  Serious: Yes (Hospitalization)
  Sender: FDA-Public Use
  Company Number: 2012SP013524

PATIENT
  Age: 38 Year
  Sex: Male
  Weight: 91 kg

DRUGS (6)
  1. SAPHRIS [Suspect]
     Indication: PRODUCT USED FOR UNKNOWN INDICATION
     Dosage: 5 MG;BID;SL
     Route: 060
  2. CLONAZEPAM [Concomitant]
  3. CLOZARIL [Concomitant]
  4. ABILIFY [Concomitant]
  5. PANTOPRAZOLE SODIUM [Concomitant]
  6. CRESTOR [Concomitant]

REACTIONS (1)
  - CONVULSION [None]
